FAERS Safety Report 7253226-6 (Version None)
Quarter: 2011Q1

REPORT INFORMATION
  Report Type: 
  Country: None (occurrence: None)
  Receive Date: 20110129
  Receipt Date: 20100215
  Transmission Date: 20110831
  Serious: No
  Sender: FDA-Public Use
  Company Number: US-ABBOTT-10P-163-0627145-00

PATIENT
  Sex: Female
  Weight: 95.34 kg

DRUGS (8)
  1. METHOTREXATE [Concomitant]
     Indication: PRODUCT USED FOR UNKNOWN INDICATION
     Dates: start: 20050101
  2. LEVOXYL [Concomitant]
     Indication: HYPOTHYROIDISM
  3. QUINAPRIL HCT [Concomitant]
     Indication: DIURETIC THERAPY
     Dosage: 20/12.5 MG
  4. ASPIRIN [Concomitant]
     Indication: PRODUCT USED FOR UNKNOWN INDICATION
  5. HUMIRA [Suspect]
     Indication: PSORIATIC ARTHROPATHY
     Route: 058
     Dates: start: 20060101
  6. BYSTOLIC [Concomitant]
     Indication: BLOOD PRESSURE
  7. JANUMET [Concomitant]
     Indication: DIABETES MELLITUS
     Dosage: 50/1000
  8. LIPITOR [Concomitant]
     Indication: PRODUCT USED FOR UNKNOWN INDICATION

REACTIONS (3)
  - POOR QUALITY DRUG ADMINISTERED [None]
  - PRODUCT QUALITY ISSUE [None]
  - INJECTION SITE PAIN [None]
